FAERS Safety Report 19787354 (Version 3)
Quarter: 2021Q3

REPORT INFORMATION
  Report Type: Report from Study
  Country: CA (occurrence: CA)
  Receive Date: 20210903
  Receipt Date: 20210914
  Transmission Date: 20211014
  Serious: Yes (Hospitalization, Other)
  Sender: FDA-Public Use
  Company Number: CA-HLS-202108336

PATIENT
  Age: 39 Year
  Sex: Female

DRUGS (18)
  1. BENZTROPINE MESYLATE. [Concomitant]
     Active Substance: BENZTROPINE MESYLATE
     Indication: EXTRAPYRAMIDAL DISORDER
     Dosage: AS NEEDED
     Route: 048
  2. CLOZARIL [Suspect]
     Active Substance: CLOZAPINE
     Indication: PRODUCT USED FOR UNKNOWN INDICATION
     Route: 048
     Dates: start: 20201204
  3. SENNOSIDES. [Concomitant]
     Active Substance: SENNOSIDES
     Indication: PRODUCT USED FOR UNKNOWN INDICATION
     Route: 048
  4. POLYETHYLENE GLYCOL [Concomitant]
     Active Substance: POLYETHYLENE GLYCOLS
     Indication: CONSTIPATION
     Dosage: POLYETHYLENE GLYCOL 3350 PACKET : 1 PACK DAILY AS NEEDED
     Route: 048
  5. LORAZEPAM. [Concomitant]
     Active Substance: LORAZEPAM
     Indication: AGITATION
     Dosage: EVERY 4 HOUR AS NEEDED
     Route: 048
  6. CLOZARIL [Suspect]
     Active Substance: CLOZAPINE
     Indication: PRODUCT USED FOR UNKNOWN INDICATION
     Route: 048
  7. NICOTINE GUM [Concomitant]
     Active Substance: NICOTINE
     Indication: SMOKING CESSATION THERAPY
     Dosage: 4 MG BUCALLY EVERY 1 HOUR AS NEEDED
     Route: 002
  8. COGENTIN [Suspect]
     Active Substance: BENZTROPINE MESYLATE
     Indication: PRODUCT USED FOR UNKNOWN INDICATION
     Route: 065
  9. CLOZARIL [Suspect]
     Active Substance: CLOZAPINE
     Indication: PRODUCT USED FOR UNKNOWN INDICATION
     Dosage: 100 MG TAB : 300 MG AT EVERY BEDTIME
     Route: 048
     Dates: start: 202101
  10. BENZTROPINE MESYLATE. [Concomitant]
     Active Substance: BENZTROPINE MESYLATE
     Indication: EXTRAPYRAMIDAL DISORDER
     Dosage: 1 MG TAB : 0.5 MG AT BEDTIME
     Route: 048
  11. METOPROLOL TARTRATE. [Concomitant]
     Active Substance: METOPROLOL TARTRATE
     Indication: PRODUCT USED FOR UNKNOWN INDICATION
     Route: 048
  12. ACTETAMINOPHEN [Concomitant]
     Indication: HEADACHE
     Dosage: 325 MG : 975 EVERY 6 HOURS EVERY 6 HOUR AS NEEDED
     Route: 048
  13. ACTETAMINOPHEN [Concomitant]
     Indication: PAIN
     Dosage: 325 MG : 975 EVERY 6 HOURS EVERY 6 HOUR AS NEEDED
     Route: 048
  14. RANITIDINE HCL [Concomitant]
     Active Substance: RANITIDINE HYDROCHLORIDE
     Indication: GASTROOESOPHAGEAL REFLUX DISEASE
     Dosage: TWICE DAILY AS NEEDED
     Route: 048
  15. CLOZARIL [Suspect]
     Active Substance: CLOZAPINE
     Indication: PRODUCT USED FOR UNKNOWN INDICATION
     Route: 048
  16. HALOPERIDOL DECANOATE. [Concomitant]
     Active Substance: HALOPERIDOL DECANOATE
     Indication: PRODUCT USED FOR UNKNOWN INDICATION
     Dosage: 100 MG /ML INJ 5 ML VIAL
     Route: 030
  17. ACTETAMINOPHEN [Concomitant]
     Indication: PYREXIA
     Dosage: 325 MG : 975 EVERY 6 HOURS EVERY 6 HOUR AS NEEDED
     Route: 048
  18. BENZTROPINE MESYLATE. [Concomitant]
     Active Substance: BENZTROPINE MESYLATE
     Indication: EXTRAPYRAMIDAL DISORDER
     Dosage: AS NEEDED ??BENZTROPINE MESYLATE : 1 MG /ML INJ 2ML VIAL
     Route: 030

REACTIONS (5)
  - Palpitations [Unknown]
  - Oculogyric crisis [Unknown]
  - Sinus tachycardia [Unknown]
  - Anxiety [Unknown]
  - Heart rate increased [Not Recovered/Not Resolved]

NARRATIVE: CASE EVENT DATE: 202108
